FAERS Safety Report 21535830 (Version 3)
Quarter: 2023Q1

REPORT INFORMATION
  Report Type: Report from Study
  Country: US (occurrence: US)
  Receive Date: 20221101
  Receipt Date: 20230321
  Transmission Date: 20230417
  Serious: Yes (Death, Hospitalization)
  Sender: FDA-Public Use
  Company Number: US-KOREA IPSEN Pharma-2022-21939

PATIENT
  Age: 83 Year
  Sex: Female

DRUGS (2)
  1. SOMATULINE DEPOT [Suspect]
     Active Substance: LANREOTIDE ACETATE
     Indication: Acromegaly
     Dosage: 90 MG, EVERY 4 WEEKS
     Route: 058
     Dates: start: 202109
  2. SOMATULINE DEPOT [Suspect]
     Active Substance: LANREOTIDE ACETATE
     Dosage: 120 MG, EVERY 28 DAYS
     Route: 065

REACTIONS (9)
  - Death [Fatal]
  - Fall [Recovering/Resolving]
  - Back injury [Not Recovered/Not Resolved]
  - Limb injury [Recovering/Resolving]
  - Gait disturbance [Recovering/Resolving]
  - Illness [Unknown]
  - Affect lability [Not Recovered/Not Resolved]
  - Dysstasia [Not Recovered/Not Resolved]
  - Inappropriate schedule of product administration [Unknown]

NARRATIVE: CASE EVENT DATE: 20220701
